FAERS Safety Report 5352489-1 (Version None)
Quarter: 2007Q2

REPORT INFORMATION
  Report Type: 
  Country: None (occurrence: None)
  Receive Date: 20070611
  Receipt Date: 20070606
  Transmission Date: 20071010
  Serious: Yes (Hospitalization)
  Sender: FDA-Public Use
  Company Number: D0053242A

PATIENT
  Age: 56 Year
  Sex: Male
  Weight: 90 kg

DRUGS (5)
  1. QUILONUM RETARD [Suspect]
     Dosage: 675MG PER DAY
     Route: 048
     Dates: end: 20070425
  2. ASPIRIN [Concomitant]
     Dosage: 100MG IN THE MORNING
     Route: 048
  3. LASIX [Concomitant]
     Dosage: 40MG IN THE MORNING
     Route: 048
  4. TEGRETOL [Concomitant]
     Dosage: 400MG TWICE PER DAY
     Route: 048
  5. NOVORAPID [Concomitant]
     Route: 058

REACTIONS (2)
  - HYPOKALAEMIA [None]
  - LONG QT SYNDROME [None]
